FAERS Safety Report 17976644 (Version 1)
Quarter: 2020Q3

REPORT INFORMATION
  Report Type: Spontaneous
  Country: JP (occurrence: JP)
  Receive Date: 20200703
  Receipt Date: 20200703
  Transmission Date: 20201103
  Serious: Yes (Other)
  Sender: FDA-Public Use
  Company Number: JP-AUROBINDO-AUR-APL-2020-031570

PATIENT
  Age: 72 Year
  Sex: Female

DRUGS (3)
  1. BORTEZOMIB. [Suspect]
     Active Substance: BORTEZOMIB
     Indication: PLASMA CELL MYELOMA
     Dosage: 87 MILLIGRAM,  TOTAL DOSE PER BODY SURFACE AREA,THREE COURSES OF VMP
     Route: 065
  2. PREDNISOLONE. [Suspect]
     Active Substance: PREDNISOLONE
     Indication: PLASMA CELL MYELOMA
     Dosage: 754 MILLIGRAM,  TOTAL DOSE PER BODY SURFACE AREA,THREE COURSES OF VMP
     Route: 065
  3. MELPHALAN. [Suspect]
     Active Substance: MELPHALAN
     Indication: PLASMA CELL MYELOMA
     Dosage: 10.4 MILLIGRAM,  TOTAL DOSE PER BODY SURFACE AREA,THREE COURSES OF VMP
     Route: 065

REACTIONS (1)
  - Disease progression [Recovered/Resolved]
